FAERS Safety Report 8382019-1 (Version None)
Quarter: 2012Q2

REPORT INFORMATION
  Report Type: 
  Country: None (occurrence: None)
  Receive Date: 20120522
  Receipt Date: 20120508
  Transmission Date: 20120825
  Serious: Yes (Hospitalization)
  Sender: FDA-Public Use
  Company Number: GB-DEXPHARM-20120525

PATIENT
  Age: 23 Year
  Sex: Female

DRUGS (4)
  1. CHLORHEXIDINE GLUCONATE [Suspect]
     Indication: DERMATITIS ATOPIC
  2. NEOMYCIN SULFATE TAB [Suspect]
     Indication: DERMATITIS ATOPIC
  3. BENZALKONIUM CHLORIDE [Suspect]
     Indication: DERMATITIS ATOPIC
  4. CLOBETASOL PROPIONATE [Suspect]
     Indication: DERMATITIS ATOPIC

REACTIONS (3)
  - PSEUDOMONAS INFECTION [None]
  - DERMATITIS ATOPIC [None]
  - CONDITION AGGRAVATED [None]
